FAERS Safety Report 4943338-1 (Version None)
Quarter: 2006Q1

REPORT INFORMATION
  Report Type: 
  Country: None (occurrence: None)
  Receive Date: 20060309
  Receipt Date: 20060228
  Transmission Date: 20060701
  Serious: Yes (Hospitalization)
  Sender: FDA-Public Use
  Company Number: 163-20785-06010405

PATIENT
  Age: 71 Year
  Sex: Male

DRUGS (5)
  1. THALOMID [Suspect]
     Indication: MULTIPLE MYELOMA
     Dosage: 50 MG, AT BEDTIME, ORAL
     Route: 048
     Dates: start: 20051215, end: 20060104
  2. THALOMID [Suspect]
     Indication: MULTIPLE MYELOMA
     Dosage: 50 MG, AT BEDTIME, ORAL
     Route: 048
     Dates: start: 20060101
  3. ALLOPURINOL [Concomitant]
  4. ATIVAN [Concomitant]
  5. MS ELIXIR [Concomitant]

REACTIONS (16)
  - ASTHENIA [None]
  - CHEST PAIN [None]
  - CONFUSIONAL STATE [None]
  - DEHYDRATION [None]
  - DIALYSIS [None]
  - DIVERTICULITIS [None]
  - DYSPNOEA EXACERBATED [None]
  - HAEMATOCRIT DECREASED [None]
  - HAEMOGLOBIN DECREASED [None]
  - INFECTION [None]
  - ORAL INTAKE REDUCED [None]
  - POSTOPERATIVE WOUND INFECTION [None]
  - RENAL FAILURE ACUTE [None]
  - SINUS TACHYCARDIA [None]
  - SKIN ULCER [None]
  - WHITE BLOOD CELL COUNT INCREASED [None]
